FAERS Safety Report 8376618-0 (Version None)
Quarter: 2012Q2

REPORT INFORMATION
  Report Type: 
  Country: None (occurrence: None)
  Receive Date: 20120522
  Receipt Date: 20120518
  Transmission Date: 20120825
  Serious: No
  Sender: FDA-Public Use
  Company Number: US-PFIZER INC-2012121511

PATIENT
  Sex: Female
  Weight: 70.295 kg

DRUGS (2)
  1. GEODON [Suspect]
     Indication: DEMENTIA ALZHEIMER'S TYPE
     Dosage: 20 MG, AS NEEDED
     Dates: start: 20120514
  2. GEODON [Suspect]
     Indication: AGITATION
     Dosage: 40 MG, AS NEEDED
     Dates: start: 20110101, end: 20120513

REACTIONS (1)
  - SOMNOLENCE [None]
